FAERS Safety Report 8066618 (Version 4)
Quarter: 2015Q1

REPORT INFORMATION
  Report Type: Spontaneous
  Country: US (occurrence: US)
  Receive Date: 20110803
  Receipt Date: 20150325
  Transmission Date: 20150721
  Serious: Yes (Other)
  Sender: FDA-Public Use
  Company Number: US-AMGEN-USASP2011037286

PATIENT
  Age: 49 Year
  Sex: Female

DRUGS (6)
  1. HUMIRA [Concomitant]
     Active Substance: ADALIMUMAB
     Dosage: UNK
     Dates: end: 20100218
  2. NEORAL [Concomitant]
     Active Substance: CYCLOSPORINE
     Dosage: UNK
     Dates: end: 20030530
  3. RAPTIVA [Concomitant]
     Active Substance: EFALIZUMAB
     Dosage: UNK
     Dates: end: 20090218
  4. ENBREL [Suspect]
     Active Substance: ETANERCEPT
     Indication: PSORIATIC ARTHROPATHY
     Dosage: 50 MG, 2 TIMES/WK
     Route: 065
     Dates: start: 20040130
  5. METHOTREXATE [Concomitant]
     Active Substance: METHOTREXATE
     Dosage: UNK
     Dates: end: 20091015
  6. AMEVIVE [Concomitant]
     Active Substance: ALEFACEPT
     Dosage: UNK
     Dates: end: 20040505

REACTIONS (5)
  - Abdominal hernia [Recovered/Resolved]
  - Benign breast neoplasm [Not Recovered/Not Resolved]
  - Injection site pain [Not Recovered/Not Resolved]
  - Breast cancer female [Recovered/Resolved]
  - Dystrophic calcification [Not Recovered/Not Resolved]

NARRATIVE: CASE EVENT DATE: 20100324
